FAERS Safety Report 5957650-0 (Version None)
Quarter: 2008Q4

REPORT INFORMATION
  Report Type: 
  Country: None (occurrence: None)
  Receive Date: 20081119
  Receipt Date: 20081114
  Transmission Date: 20090506
  Serious: No
  Sender: FDA-Public Use
  Company Number: GB-WYE-G02535008

PATIENT
  Sex: Male

DRUGS (2)
  1. EFFEXOR XR [Suspect]
     Indication: DEPRESSION
     Route: 048
     Dates: start: 20080211
  2. LORAZEPAM [Concomitant]
     Dosage: .5 MG EVERY 1 PRN

REACTIONS (6)
  - HYPOAESTHESIA [None]
  - HYPOAESTHESIA FACIAL [None]
  - INFLUENZA LIKE ILLNESS [None]
  - PARAESTHESIA [None]
  - SENSORY LOSS [None]
  - TRIGEMINAL NERVE DISORDER [None]
